FAERS Safety Report 14905199 (Version 1)
Quarter: 2018Q2

REPORT INFORMATION
  Report Type: Spontaneous
  Country: US (occurrence: US)
  Receive Date: 20180517
  Receipt Date: 20180517
  Transmission Date: 20180711
  Serious: No
  Sender: FDA-Public Use
  Company Number: US-SA-2017SA231144

PATIENT
  Sex: Female

DRUGS (4)
  1. LANTUS SOLOSTAR [Suspect]
     Active Substance: INSULIN GLARGINE
     Dosage: DOSE: 20 UNITS IN THE AM AND 10 UNITS IN THE PM
     Route: 051
  2. SOLOSTAR [Suspect]
     Active Substance: DEVICE
  3. SOLOSTAR [Suspect]
     Active Substance: DEVICE
  4. LANTUS SOLOSTAR [Suspect]
     Active Substance: INSULIN GLARGINE
     Dosage: DOSE:20 UNIT(S)
     Route: 051

REACTIONS (6)
  - Headache [Unknown]
  - Blood glucose abnormal [Unknown]
  - Musculoskeletal pain [Unknown]
  - Off label use [Unknown]
  - Rash pruritic [Unknown]
  - Chest pain [Unknown]

NARRATIVE: CASE EVENT DATE: 20171116
